FAERS Safety Report 10737237 (Version 2)
Quarter: 2015Q1

REPORT INFORMATION
  Report Type: Spontaneous
  Country: US (occurrence: None)
  Receive Date: 20150122
  Receipt Date: 20150130
  Transmission Date: 20150721
  Serious: Yes (Other)
  Sender: FDA-Public Use
  Company Number: US2015GSK007420

PATIENT
  Age: 16 Year
  Sex: Male

DRUGS (6)
  1. ABACAVIR (ABACAVIR SULPHATE) UNKNOWN [Suspect]
     Active Substance: ABACAVIR
     Indication: HIV INFECTION
  2. LAMIVUDINE (LAMIVUDINE) UNKNOWN [Suspect]
     Active Substance: LAMIVUDINE
     Indication: HIV INFECTION
  3. ATOVAQUONE (ATOVAQUONE) [Concomitant]
  4. ACYCLOVIR. [Concomitant]
     Active Substance: ACYCLOVIR
  5. DOLUTEGRAVIR (DOLUTEGRAVIR) UNKNOWN [Suspect]
     Active Substance: DOLUTEGRAVIR
     Indication: HIV INFECTION
  6. COTRIMOXAZOLE [Suspect]
     Active Substance: SULFAMETHOXAZOLE\TRIMETHOPRIM
     Indication: PRODUCT USED FOR UNKNOWN INDICATION

REACTIONS (10)
  - Chills [None]
  - Pancreatitis acute [None]
  - Herpes simplex oesophagitis [None]
  - Adverse event [None]
  - Pyrexia [None]
  - Hyponatraemia [None]
  - Acute kidney injury [None]
  - Gastritis [None]
  - Abdominal pain [None]
  - Transaminases increased [None]
